FAERS Safety Report 12639602 (Version 1)
Quarter: 2016Q3

REPORT INFORMATION
  Report Type: Spontaneous
  Country: US (occurrence: US)
  Receive Date: 20160810
  Receipt Date: 20160810
  Transmission Date: 20161109
  Serious: Yes (Hospitalization)
  Sender: FDA-Public Use
  Company Number: US-APOTEX-2016AP010203

PATIENT
  Age: 61 Year
  Sex: Male

DRUGS (2)
  1. GLIPIZIDE. [Suspect]
     Active Substance: GLIPIZIDE
     Indication: INTENTIONAL OVERDOSE
     Dosage: 20 TABLETS
     Route: 048
  2. GLIPIZIDE. [Suspect]
     Active Substance: GLIPIZIDE
     Indication: TYPE 2 DIABETES MELLITUS
     Dosage: UNK
     Route: 065

REACTIONS (2)
  - Hypoglycaemia [Recovered/Resolved]
  - Intentional overdose [Recovered/Resolved]
